FAERS Safety Report 24833847 (Version 1)
Quarter: 2025Q1

REPORT INFORMATION
  Report Type: Spontaneous
  Country: DE (occurrence: DE)
  Receive Date: 20250112
  Receipt Date: 20250112
  Transmission Date: 20250408
  Serious: Yes (Hospitalization, Other)
  Sender: ABBVIE
  Company Number: None

PATIENT
  Age: 57 Year
  Sex: Female

DRUGS (8)
  1. CARIPRAZINE HYDROCHLORIDE [Suspect]
     Active Substance: CARIPRAZINE HYDROCHLORIDE
     Indication: Depression
     Route: 048
     Dates: start: 20231117
  2. CARIPRAZINE HYDROCHLORIDE [Suspect]
     Active Substance: CARIPRAZINE HYDROCHLORIDE
     Indication: Depression
     Route: 048
     Dates: start: 20231108, end: 20231113
  3. CARIPRAZINE HYDROCHLORIDE [Suspect]
     Active Substance: CARIPRAZINE HYDROCHLORIDE
     Indication: Depression
     Route: 048
     Dates: start: 20231103, end: 20231107
  4. CARIPRAZINE HYDROCHLORIDE [Suspect]
     Active Substance: CARIPRAZINE HYDROCHLORIDE
     Indication: Depression
     Route: 048
     Dates: start: 20231114, end: 20231116
  5. PROTHIPENDYL [Suspect]
     Active Substance: PROTHIPENDYL
     Indication: Depression
     Route: 048
     Dates: start: 20231031, end: 20231130
  6. PROTHIPENDYL [Suspect]
     Active Substance: PROTHIPENDYL
     Indication: Depression
     Route: 048
     Dates: start: 20231201, end: 20231202
  7. QUETIAPINE [Suspect]
     Active Substance: QUETIAPINE
     Indication: Depression
     Route: 048
     Dates: start: 20231016, end: 20231122
  8. QUETIAPINE [Suspect]
     Active Substance: QUETIAPINE
     Indication: Depression
     Route: 048
     Dates: start: 20231123

REACTIONS (7)
  - Chest discomfort [Recovered/Resolved]
  - Pulmonary embolism [Recovered/Resolved]
  - Sinus tachycardia [Recovered/Resolved]
  - Pneumonia [Recovered/Resolved]
  - Oxygen saturation decreased [Recovered/Resolved]
  - Fibrin D dimer increased [Recovered/Resolved]
  - Dyspnoea [Recovered/Resolved]

NARRATIVE: CASE EVENT DATE: 20231130
